FAERS Safety Report 20526151 (Version 1)
Quarter: 2022Q1

REPORT INFORMATION
  Report Type: Report from Study
  Country: US (occurrence: US)
  Receive Date: 20220228
  Receipt Date: 20220228
  Transmission Date: 20220423
  Serious: No
  Sender: FDA-Public Use
  Company Number: US-HRARD-2021000101

PATIENT
  Age: 55 Year
  Sex: Male

DRUGS (2)
  1. METOPIRONE [Suspect]
     Active Substance: METYRAPONE
     Route: 048
     Dates: start: 20210112, end: 20210221
  2. LYSODREN [Concomitant]
     Active Substance: MITOTANE
     Route: 048
     Dates: start: 20201223, end: 20210221

REACTIONS (1)
  - Off label use [Unknown]

NARRATIVE: CASE EVENT DATE: 20201223
